FAERS Safety Report 9207334 (Version 2)
Quarter: 2013Q2

REPORT INFORMATION
  Report Type: Spontaneous
  Country: DE (occurrence: DE)
  Receive Date: 20130403
  Receipt Date: 20130614
  Transmission Date: 20140414
  Serious: Yes (Hospitalization, Disabling)
  Sender: FDA-Public Use
  Company Number: DE-JNJFOC-20130401601

PATIENT
  Age: 79 Year
  Sex: Female
  Weight: 55 kg

DRUGS (2)
  1. XARELTO [Suspect]
     Indication: ARTERIAL OCCLUSIVE DISEASE
     Route: 048
     Dates: start: 20130128, end: 20130218
  2. SIMVASTIN [Suspect]
     Indication: CORONARY ARTERY DISEASE
     Route: 048
     Dates: end: 20130218

REACTIONS (1)
  - Rhabdomyolysis [Recovered/Resolved]
